FAERS Safety Report 5499898-8 (Version None)
Quarter: 2007Q4

REPORT INFORMATION
  Report Type: 
  Country: None (occurrence: None)
  Receive Date: 20071026
  Receipt Date: 20071015
  Transmission Date: 20080405
  Serious: Yes (Other)
  Sender: FDA-Public Use
  Company Number: US-PFIZER INC-2007087413

PATIENT
  Sex: Female
  Weight: 65.909 kg

DRUGS (3)
  1. CHANTIX [Suspect]
     Indication: SMOKING CESSATION THERAPY
     Route: 048
     Dates: start: 20070914, end: 20071013
  2. LEXAPRO [Concomitant]
     Indication: BIPOLAR DISORDER
  3. LEXAPRO [Concomitant]
     Indication: SCHIZOPHRENIA

REACTIONS (4)
  - BIPOLAR DISORDER [None]
  - DEPRESSION [None]
  - SCHIZOPHRENIA [None]
  - SUICIDAL IDEATION [None]
